FAERS Safety Report 18826929 (Version 1)
Quarter: 2021Q1

REPORT INFORMATION
  Report Type: Spontaneous
  Country: US (occurrence: US)
  Receive Date: 20210202
  Receipt Date: 20210202
  Transmission Date: 20210419
  Serious: No
  Sender: FDA-Public Use
  Company Number: US-PERRIGO-20US017813

PATIENT
  Sex: Female

DRUGS (2)
  1. ESTRADIOL. [Suspect]
     Active Substance: ESTRADIOL
     Indication: PRODUCT USED FOR UNKNOWN INDICATION
     Dosage: 2 G, TWICE WEEKLY
     Route: 067
     Dates: start: 202011, end: 202011
  2. ESTRADIOL. [Suspect]
     Active Substance: ESTRADIOL
     Dosage: 2 G, SINGLE
     Route: 067
     Dates: start: 20201201, end: 20201201

REACTIONS (1)
  - Vulvovaginal burning sensation [Recovered/Resolved]

NARRATIVE: CASE EVENT DATE: 20201201
